FAERS Safety Report 7179160-8 (Version None)
Quarter: 2010Q4

REPORT INFORMATION
  Report Type: 
  Country: None (occurrence: None)
  Receive Date: 20101221
  Receipt Date: 20101218
  Transmission Date: 20110411
  Serious: Yes (Other)
  Sender: FDA-Public Use
  Company Number: US-PFIZER INC-2010001979

PATIENT
  Sex: Female
  Weight: 97.5 kg

DRUGS (5)
  1. LYRICA [Suspect]
     Indication: NEURALGIA
     Dosage: UNK
     Route: 048
     Dates: end: 20100601
  2. METHADONE [Concomitant]
     Dosage: 70 MG, 1X/DAY
     Route: 048
  3. SOMA [Concomitant]
     Dosage: 350 MG, 4X/DAY
     Route: 048
  4. KLONOPIN [Concomitant]
     Dosage: 2 MG, 1X/DAY
     Route: 048
  5. NORCO [Concomitant]
     Dosage: UNK
     Route: 048

REACTIONS (3)
  - ENURESIS [None]
  - OEDEMA [None]
  - WEIGHT INCREASED [None]
